FAERS Safety Report 6206869-2 (Version None)
Quarter: 2009Q2

REPORT INFORMATION
  Report Type: 
  Country: None (occurrence: None)
  Receive Date: 20090528
  Receipt Date: 20090518
  Transmission Date: 20091009
  Serious: Yes (Hospitalization)
  Sender: FDA-Public Use
  Company Number: US-WATSON-2009-03522

PATIENT
  Age: 51 Year
  Sex: Male

DRUGS (1)
  1. HEPARIN SODIUM [Suspect]
     Indication: THROMBOSIS PROPHYLAXIS
     Dosage: UNK
     Dates: start: 20090101

REACTIONS (2)
  - EOSINOPHILIA [None]
  - TUBULOINTERSTITIAL NEPHRITIS [None]
